FAERS Safety Report 8570708-5 (Version None)
Quarter: 2012Q3

REPORT INFORMATION
  Report Type: 
  Country: None (occurrence: None)
  Receive Date: 20120805
  Receipt Date: 20120613
  Transmission Date: 20120928
  Serious: No
  Sender: FDA-Public Use
  Company Number: US-009507513-2012SP035566

PATIENT

DRUGS (4)
  1. VITAMIN D [Concomitant]
     Indication: VITAMIN D DEFICIENCY
     Dosage: UNK, UNKNOWN
  2. CLARITIN-D 24 HOUR [Suspect]
     Indication: MEDICAL OBSERVATION
  3. CLARITIN-D 24 HOUR [Suspect]
     Indication: HYPERSENSITIVITY
     Dosage: 10 MG, QD
     Route: 048
     Dates: start: 20120506, end: 20120510
  4. CLARITIN-D 24 HOUR [Suspect]
     Indication: LABYRINTHITIS

REACTIONS (2)
  - SOMNOLENCE [None]
  - NO THERAPEUTIC RESPONSE [None]
